FAERS Safety Report 8167826-2 (Version None)
Quarter: 2012Q1

REPORT INFORMATION
  Report Type: 
  Country: None (occurrence: None)
  Receive Date: 20120227
  Receipt Date: 20120223
  Transmission Date: 20120608
  Serious: Yes (Death)
  Sender: FDA-Public Use
  Company Number: FR-BRISTOL-MYERS SQUIBB COMPANY-16240954

PATIENT
  Age: 20 Year
  Sex: Male

DRUGS (2)
  1. ABILIFY [Suspect]
     Indication: SCHIZOPHRENIA
     Dosage: INITIAL 10MG/D FOR 2 MONTHS DOSE INCREASED TO 15MG/D ON 05MAY2011
     Route: 048
     Dates: start: 20110306
  2. ABILIFY [Suspect]
     Indication: PSYCHOTIC DISORDER
     Dosage: INITIAL 10MG/D FOR 2 MONTHS DOSE INCREASED TO 15MG/D ON 05MAY2011
     Route: 048
     Dates: start: 20110306

REACTIONS (1)
  - CARDIAC ARREST [None]
